FAERS Safety Report 8935225 (Version 1)
Quarter: 2012Q4

REPORT INFORMATION
  Report Type: 
  Country: US (occurrence: US)
  Receive Date: 20121129
  Receipt Date: 20121129
  Transmission Date: 20130627
  Serious: Yes (Hospitalization)
  Sender: FDA-Public Use
  Company Number: US-ELI_LILLY_AND_COMPANY-US201209004273

PATIENT
  Age: 61 Year
  Sex: Female

DRUGS (7)
  1. FORTEO [Suspect]
     Indication: OSTEOPOROSIS
     Dosage: UNK, qd
  2. FORTEO [Suspect]
     Dosage: UNK, qd
     Dates: start: 20120913
  3. FORTEO [Suspect]
     Dosage: 20 ug, qd
  4. CARVEDILOL [Concomitant]
     Indication: HYPERTENSION
  5. AMLODIPINE BESYLATE [Concomitant]
  6. CALCIUM [Concomitant]
  7. VITAMINS [Concomitant]

REACTIONS (4)
  - Embolism [Unknown]
  - Anxiety [Unknown]
  - Underdose [Unknown]
  - Drug dose omission [Unknown]
